FAERS Safety Report 4992800-4 (Version None)
Quarter: 2006Q1

REPORT INFORMATION
  Report Type: 
  Country: None (occurrence: None)
  Receive Date: 20060315
  Receipt Date: 20060130
  Transmission Date: 20060701
  Serious: Yes (Other)
  Sender: FDA-Public Use
  Company Number: 2006RL000029

PATIENT

DRUGS (1)
  1. OMACOR [Suspect]
     Indication: HYPERTRIGLYCERIDAEMIA
     Dosage: 4 GM QD PO
     Route: 048
     Dates: start: 20051101, end: 20060101

REACTIONS (1)
  - PANCREATITIS ACUTE [None]
